FAERS Safety Report 9222907 (Version 1)
Quarter: 2013Q1

REPORT INFORMATION
  Report Type: Spontaneous
  Country: US (occurrence: None)
  Receive Date: 20120914
  Receipt Date: 20120914
  Transmission Date: 20140127
  Serious: Yes (Hospitalization)
  Sender: FDA-Public Use
  Company Number: JPI-P-017812

PATIENT
  Age: 29 Year
  Sex: Female
  Weight: 46.27 kg

DRUGS (2)
  1. XYREM (500 MILLIGRAM/MILLILITERS, SOLUTION) (SODIUM OXYBATE) [Suspect]
     Indication: INSOMNIA
     Dosage: 2 IN  1 D
     Route: 048
     Dates: start: 20111007, end: 2011
  2. UNSPECIFIED MEDICATOINS [Concomitant]

REACTIONS (5)
  - Hypothyroidism [None]
  - Adrenal insufficiency [None]
  - Pyrexia [None]
  - Diarrhoea [None]
  - Insomnia [None]
